FAERS Safety Report 4446832-5 (Version None)
Quarter: 2004Q3

REPORT INFORMATION
  Report Type: 
  Country: None (occurrence: None)
  Receive Date: 20040908
  Receipt Date: 20040820
  Transmission Date: 20050211
  Serious: Yes (Death)
  Sender: FDA-Public Use
  Company Number: 2004231216US

PATIENT
  Age: 75 Year
  Sex: Female

DRUGS (1)
  1. CELEBREX [Suspect]
     Dosage: 100 MG, BID
     Dates: start: 19990224, end: 20000301

REACTIONS (2)
  - ACUTE MYOCARDIAL INFARCTION [None]
  - RENAL FAILURE [None]
